FAERS Safety Report 10916085 (Version 2)
Quarter: 2015Q1

REPORT INFORMATION
  Report Type: Spontaneous
  Country: FR (occurrence: FR)
  Receive Date: 20150316
  Receipt Date: 20150319
  Transmission Date: 20150721
  Serious: Yes (Hospitalization)
  Sender: FDA-Public Use
  Company Number: FR-PFIZER INC-2015079912

PATIENT
  Age: 79 Year
  Sex: Male

DRUGS (13)
  1. KARDEGIC [Interacting]
     Active Substance: ASPIRIN LYSINE
     Dosage: 75 MG, 1X/DAY
     Route: 048
  2. EUPRESSYL [Concomitant]
     Active Substance: URAPIDIL
     Dosage: 120 MG, 1X/DAY
     Route: 048
  3. ZYLORIC [Concomitant]
     Active Substance: ALLOPURINOL
     Dosage: 200 MG, 1X/DAY
     Route: 048
  4. PREVISCAN [Interacting]
     Active Substance: FLUINDIONE
     Indication: AORTIC VALVE DISEASE
     Dosage: 20 MG, 1X/DAY
     Route: 048
     Dates: end: 20150105
  5. GALVUS [Concomitant]
     Active Substance: VILDAGLIPTIN
     Dosage: 50 MG, 1X/DAY
     Route: 048
  6. DOLIPRANE [Concomitant]
     Active Substance: ACETAMINOPHEN
     Dosage: UP TO 6 CAPSULES (500 MG EACH) DAILY, AS NEEDED
  7. CIFLOX [Interacting]
     Active Substance: CIPROFLOXACIN
     Indication: OTITIS EXTERNA
     Dosage: 500 MG, DAILY
     Route: 048
     Dates: start: 201412
  8. OFLOCET [Interacting]
     Active Substance: OFLOXACIN
     Indication: OTITIS EXTERNA
     Dosage: UNK
     Route: 001
     Dates: start: 201412
  9. TAZOCILLINE [Suspect]
     Active Substance: PIPERACILLIN SODIUM\TAZOBACTAM SODIUM
     Indication: OTITIS EXTERNA
     Dosage: 4 G, 3X/DAY
     Route: 042
     Dates: start: 201412
  10. BISOCE [Concomitant]
     Active Substance: BISOPROLOL
     Dosage: 5 MG, 1X/DAY
     Route: 048
  11. INEXIUM [Concomitant]
     Active Substance: ESOMEPRAZOLE
     Dosage: 20 MG, 1X/DAY
     Route: 048
  12. TAHOR [Concomitant]
     Active Substance: ATORVASTATIN CALCIUM
     Dosage: 20 MG (2 TABLETS, 10 MG EACH), DAILY
     Route: 048
  13. LANTUS [Concomitant]
     Active Substance: INSULIN GLARGINE
     Dosage: 50 IU, 1X/DAY
     Route: 058

REACTIONS (3)
  - International normalised ratio increased [Recovered/Resolved]
  - Drug interaction [Recovered/Resolved]
  - Haematoma [Recovered/Resolved]

NARRATIVE: CASE EVENT DATE: 20150105
